FAERS Safety Report 25128125 (Version 2)
Quarter: 2025Q2

REPORT INFORMATION
  Report Type: Spontaneous
  Country: BR (occurrence: BR)
  Receive Date: 20250327
  Receipt Date: 20250408
  Transmission Date: 20250717
  Serious: Yes (Hospitalization, Other)
  Sender: BOEHRINGER INGELHEIM
  Company Number: BR-Komodo Health-a23aa000006UIvJAAW

PATIENT
  Age: 80 Year
  Sex: Male
  Weight: 70 kg

DRUGS (9)
  1. GILOTRIF [Suspect]
     Active Substance: AFATINIB
     Indication: Lung neoplasm malignant
     Dosage: IN THE MORNING BETWEEN 4:30 A.M. AND 5:00 A.M.
     Dates: start: 202402, end: 202502
  2. OLODATEROL HYDROCHLORIDE\TIOTROPIUM BROMIDE MONOHYDRATE [Suspect]
     Active Substance: OLODATEROL HYDROCHLORIDE\TIOTROPIUM BROMIDE MONOHYDRATE
     Indication: Emphysema
  3. Buclina [Concomitant]
     Indication: Decreased appetite
  4. Vitamina K2 [Concomitant]
     Indication: Product used for unknown indication
  5. Vitamina K3 [Concomitant]
     Indication: Product used for unknown indication
  6. VITAMIN B12 [Concomitant]
     Active Substance: CYANOCOBALAMIN
     Indication: Product used for unknown indication
  7. THIAMINE HYDROCHLORIDE [Concomitant]
     Active Substance: THIAMINE HYDROCHLORIDE
     Indication: Product used for unknown indication
  8. Nutri B [Concomitant]
     Indication: Product used for unknown indication
  9. PANTOPRAZOLE SODIUM [Concomitant]
     Active Substance: PANTOPRAZOLE SODIUM
     Indication: Prophylaxis

REACTIONS (16)
  - Lung neoplasm malignant [Unknown]
  - Pneumonia [Unknown]
  - Laryngeal dyskinesia [Unknown]
  - Asphyxia [Unknown]
  - Laryngeal dyskinesia [Unknown]
  - Gene mutation [Unknown]
  - Emphysema [Unknown]
  - Diabetes mellitus [Unknown]
  - Cardiac disorder [Unknown]
  - Anxiety [Unknown]
  - Blood viscosity increased [Unknown]
  - Blood cholesterol abnormal [Unknown]
  - Benign prostatic hyperplasia [Unknown]
  - Paralysis recurrent laryngeal nerve [Unknown]
  - Neoplasm [Unknown]
  - Drug ineffective [Unknown]

NARRATIVE: CASE EVENT DATE: 20230101
